FAERS Safety Report 5446562-7 (Version None)
Quarter: 2007Q3

REPORT INFORMATION
  Report Type: 
  Country: None (occurrence: None)
  Receive Date: 20070907
  Receipt Date: 20070620
  Transmission Date: 20080115
  Serious: Yes (Other)
  Sender: FDA-Public Use
  Company Number: US-PFIZER INC-2007012380

PATIENT
  Age: 25 Year
  Sex: Male
  Weight: 117.9 kg

DRUGS (8)
  1. CHANTIX [Suspect]
     Indication: SMOKING CESSATION THERAPY
  2. WELLBUTRIN [Concomitant]
  3. EFFEXOR [Concomitant]
  4. TRILEPTAL [Concomitant]
  5. DOCUSATE SODIUM [Concomitant]
  6. HYDROXYZINE [Concomitant]
  7. VITAMIN CAP [Concomitant]
  8. FLUPHENAZINE [Concomitant]

REACTIONS (6)
  - MOBILITY DECREASED [None]
  - NAUSEA [None]
  - NIGHTMARE [None]
  - SCIATICA [None]
  - SPINAL DISORDER [None]
  - VOMITING [None]
